FAERS Safety Report 8595942 (Version 3)
Quarter: 2013Q4

REPORT INFORMATION
  Report Type: Spontaneous
  Country: US (occurrence: US)
  Receive Date: 20120605
  Receipt Date: 20131204
  Transmission Date: 20140711
  Serious: Yes (Hospitalization, Disabling, Other)
  Sender: FDA-Public Use
  Company Number: US-ASTRAZENECA-2012SE35975

PATIENT
  Age: 58 Year
  Sex: Female
  Weight: 174.6 kg

DRUGS (15)
  1. NEXIUM [Suspect]
     Indication: DYSPEPSIA
     Dosage: TWO TIMES A DAY
     Route: 048
  2. NEXIUM [Suspect]
     Indication: DYSPEPSIA
     Route: 048
     Dates: start: 20040922
  3. PRILOSEC [Suspect]
     Dosage: AS NEEDED
     Route: 048
  4. ZANTAC [Concomitant]
  5. TAGAMET [Concomitant]
  6. PEPCID [Concomitant]
  7. TUMS [Concomitant]
  8. PEPTO-BISMOL [Concomitant]
  9. ROLAIDS [Concomitant]
  10. MYLANTA [Concomitant]
  11. ACCUPRIL [Concomitant]
     Dates: start: 20040526
  12. ESTRADIOL [Concomitant]
     Dates: start: 20040608
  13. LEVOXYL [Concomitant]
     Dates: start: 20040608
  14. ADVAIR [Concomitant]
     Dosage: 250-50
     Dates: start: 20041017
  15. AMBIEN [Concomitant]
     Dates: start: 20041228

REACTIONS (23)
  - Mental disorder [Unknown]
  - Transient ischaemic attack [Unknown]
  - Cerebrovascular accident [Unknown]
  - Chronic obstructive pulmonary disease [Unknown]
  - Arthritis [Unknown]
  - Type 2 diabetes mellitus [Unknown]
  - Joint dislocation [Unknown]
  - Rotator cuff syndrome [Unknown]
  - Osteoporosis [Unknown]
  - Ankle fracture [Unknown]
  - Bone disorder [Unknown]
  - Cataract [Unknown]
  - Hypothyroidism [Unknown]
  - Joint injury [Unknown]
  - Rib fracture [Unknown]
  - Scoliosis [Unknown]
  - Vitamin D deficiency [Unknown]
  - Fall [Unknown]
  - Intervertebral disc degeneration [Unknown]
  - Spinal column stenosis [Unknown]
  - Abdominal pain upper [Unknown]
  - Depression [Unknown]
  - Rash [Unknown]
